FAERS Safety Report 6518809-7 (Version None)
Quarter: 2009Q4

REPORT INFORMATION
  Report Type: 
  Country: None (occurrence: None)
  Receive Date: 20091228
  Receipt Date: 20091215
  Transmission Date: 20100525
  Serious: No
  Sender: FDA-Public Use
  Company Number: US-JNJFOC-20091205020

PATIENT
  Sex: Female
  Weight: 64.41 kg

DRUGS (1)
  1. FENTANYL-100 [Suspect]
     Indication: BACK PAIN
     Route: 062

REACTIONS (5)
  - DRUG INEFFECTIVE [None]
  - HYPERSOMNIA [None]
  - NAUSEA [None]
  - TREATMENT NONCOMPLIANCE [None]
  - WRONG TECHNIQUE IN DRUG USAGE PROCESS [None]
